FAERS Safety Report 15784484 (Version 1)
Quarter: 2019Q1

REPORT INFORMATION
  Report Type: Spontaneous
  Country: SE (occurrence: SE)
  Receive Date: 20190103
  Receipt Date: 20190103
  Transmission Date: 20190417
  Serious: Yes (Hospitalization)
  Sender: FDA-Public Use
  Company Number: SE-ACCORD-099570

PATIENT
  Age: 53 Year
  Sex: Female

DRUGS (19)
  1. PREDNISOLONE. [Suspect]
     Active Substance: PREDNISOLONE
     Indication: PAIN
     Dosage: TABL 10MGX2
     Dates: start: 20180115
  2. OMEPRAZOLE. [Concomitant]
     Active Substance: OMEPRAZOLE
     Dates: start: 20160425
  3. ALENDRONATE SODIUM/ALENDRONIC ACID [Concomitant]
  4. TAVEGYL [Concomitant]
     Active Substance: CLEMASTINE FUMARATE
  5. SYMBICORT [Concomitant]
     Active Substance: BUDESONIDE\FORMOTEROL FUMARATE DIHYDRATE
  6. OXYCODONE/OXYCODONE HYDROCHLORIDE/OXYCODONE PECTINATE/OXYCODONE TEREPHTHALATE [Concomitant]
  7. FRAGMIN [Suspect]
     Active Substance: DALTEPARIN SODIUM
     Indication: PULMONARY EMBOLISM
     Dosage: 7500 1X2
     Route: 058
     Dates: start: 2014, end: 201802
  8. MOMETASONE [Concomitant]
     Active Substance: MOMETASONE
  9. OXYNORM [Concomitant]
     Active Substance: OXYCODONE HYDROCHLORIDE
  10. CONCERTA [Suspect]
     Active Substance: METHYLPHENIDATE HYDROCHLORIDE
     Indication: PAIN
     Dosage: 30MG 1X1
     Route: 048
     Dates: start: 20180111, end: 20180227
  11. SERTRALINE [Suspect]
     Active Substance: SERTRALINE HYDROCHLORIDE
     Indication: DEPRESSED MOOD
     Dosage: 100MG 1X1
     Route: 048
     Dates: start: 20140306
  12. LIVOSTIN [Concomitant]
     Active Substance: LEVOCABASTINE HYDROCHLORIDE
  13. FURIX [Concomitant]
     Active Substance: FUROSEMIDE
  14. ALVEDON [Concomitant]
     Active Substance: ACETAMINOPHEN
  15. SPIRONOLACTONE. [Concomitant]
     Active Substance: SPIRONOLACTONE
  16. SUMATRIPTAN. [Concomitant]
     Active Substance: SUMATRIPTAN
  17. HIPREX [Concomitant]
     Active Substance: METHENAMINE HIPPURATE
  18. TOP DENT FLUOR [Concomitant]
  19. BRICANYL [Concomitant]
     Active Substance: TERBUTALINE SULFATE

REACTIONS (1)
  - Abdominal wall haematoma [Not Recovered/Not Resolved]

NARRATIVE: CASE EVENT DATE: 20180224
